FAERS Safety Report 14076004 (Version 1)
Quarter: 2017Q4

REPORT INFORMATION
  Report Type: Spontaneous
  Country: US (occurrence: US)
  Receive Date: 20171010
  Receipt Date: 20171010
  Transmission Date: 20180321
  Serious: No
  Sender: FDA-Public Use
  Company Number: US-MYLANLABS-2017020080

PATIENT
  Age: 68 Year
  Sex: Male
  Weight: 131.54 kg

DRUGS (18)
  1. ONDANSETRON [Concomitant]
     Active Substance: ONDANSETRON
  2. SIMETHICONE (DIMETHICONE) [Concomitant]
     Active Substance: DIMETHICONE
  3. POTASSIUM [Concomitant]
     Active Substance: POTASSIUM
  4. RANITIDINE. [Concomitant]
     Active Substance: RANITIDINE
  5. RANOLAZINE. [Concomitant]
     Active Substance: RANOLAZINE
  6. MUSE [Suspect]
     Active Substance: ALPROSTADIL
     Indication: ERECTILE DYSFUNCTION
     Dosage: 1000 ?G,PRN
     Route: 066
     Dates: start: 201701
  7. MECLIZINE [Concomitant]
     Active Substance: MECLIZINE HYDROCHLORIDE
  8. CARVEDILOL. [Concomitant]
     Active Substance: CARVEDILOL
  9. GABAPENTIN. [Concomitant]
     Active Substance: GABAPENTIN
  10. TRAMADOL. [Concomitant]
     Active Substance: TRAMADOL
  11. FUROSEMIDE. [Concomitant]
     Active Substance: FUROSEMIDE
  12. CLOPIDOGREL [Concomitant]
     Active Substance: CLOPIDOGREL BISULFATE
  13. CIPRO [Concomitant]
     Active Substance: CIPROFLOXACIN HYDROCHLORIDE
  14. PANTOPRAZOLE [Concomitant]
     Active Substance: PANTOPRAZOLE
  15. TRAZODONE [Concomitant]
     Active Substance: TRAZODONE HYDROCHLORIDE
  16. CYCLOBENZAPRINE. [Concomitant]
     Active Substance: CYCLOBENZAPRINE
  17. ALLOPURINOL. [Concomitant]
     Active Substance: ALLOPURINOL
  18. KETOCONAZOLE. [Concomitant]
     Active Substance: KETOCONAZOLE

REACTIONS (2)
  - Wrong technique in product usage process [Recovered/Resolved]
  - No adverse event [Not Recovered/Not Resolved]

NARRATIVE: CASE EVENT DATE: 201701
